FAERS Safety Report 9255412 (Version 1)
Quarter: 2013Q2

REPORT INFORMATION
  Report Type: Spontaneous
  Country: US (occurrence: None)
  Receive Date: 20130418
  Receipt Date: 20130418
  Transmission Date: 20140414
  Serious: Yes (Hospitalization)
  Sender: FDA-Public Use
  Company Number: IMP_06659_2013

PATIENT
  Age: 76 Year
  Sex: Female

DRUGS (2)
  1. MIDORINE [Suspect]
     Indication: PRODUCT USED FOR UNKNOWN INDICATION
  2. FLUDROCORTISONE [Concomitant]

REACTIONS (3)
  - Hallucination, visual [None]
  - Orthostatic hypotension [None]
  - Sleep disorder [None]
